FAERS Safety Report 15860758 (Version 2)
Quarter: 2019Q1

REPORT INFORMATION
  Report Type: Spontaneous
  Country: US (occurrence: US)
  Receive Date: 20190124
  Receipt Date: 20190211
  Transmission Date: 20190417
  Serious: Yes (Other)
  Sender: FDA-Public Use
  Company Number: PHEH2018US055171

PATIENT
  Age: 48 Year
  Sex: Male
  Weight: 81.63 kg

DRUGS (2)
  1. CLOFAZIMINE [Suspect]
     Active Substance: CLOFAZIMINE
     Indication: MYCOBACTERIAL INFECTION
     Dosage: 100 MG, QD
     Route: 048
     Dates: start: 20180223
  2. CLOFAZIMINE [Suspect]
     Active Substance: CLOFAZIMINE
     Dosage: 100 MG, QD
     Route: 048
     Dates: start: 20181004

REACTIONS (5)
  - Pulmonary oedema [Recovering/Resolving]
  - Productive cough [Recovering/Resolving]
  - Peripheral swelling [Recovered/Resolved]
  - Pruritus [Recovering/Resolving]
  - Epistaxis [Recovered/Resolved]

NARRATIVE: CASE EVENT DATE: 20181004
